FAERS Safety Report 4280516-1 (Version None)
Quarter: 2004Q1

REPORT INFORMATION
  Report Type: 
  Country: None (occurrence: None)
  Receive Date: 20040128
  Receipt Date: 20040128
  Transmission Date: 20041129
  Serious: Yes (Hospitalization)
  Sender: FDA-Public Use
  Company Number: None

PATIENT
  Sex: Male

DRUGS (11)
  1. OXYCODONE HCL [Suspect]
     Indication: PAIN
     Dosage: 10 MG Q 4 HR PRN ORAL
     Route: 048
     Dates: start: 20031122, end: 20031203
  2. DOCUSATE [Concomitant]
  3. FERROUS SULFATE TAB [Concomitant]
  4. FINASTERIDE [Concomitant]
  5. FLUOXETINE [Concomitant]
  6. NAPROXEN [Concomitant]
  7. KCL TAB [Concomitant]
  8. RABEPRAZOLE SODIUM [Concomitant]
  9. TERAZOSIN HCL [Concomitant]
  10. TRAZODONE HCL [Concomitant]
  11. TEMAZEPAM [Concomitant]

REACTIONS (3)
  - CHOLELITHIASIS [None]
  - HYPERHIDROSIS [None]
  - NAUSEA [None]
